FAERS Safety Report 15592147 (Version 1)
Quarter: 2018Q4

REPORT INFORMATION
  Report Type: Spontaneous
  Country: US (occurrence: US)
  Receive Date: 20181106
  Receipt Date: 20181106
  Transmission Date: 20190205
  Serious: No
  Sender: FDA-Public Use
  Company Number: US-PERRIGO-17US032044

PATIENT
  Age: 58 Year
  Sex: Male
  Weight: 102.4 kg

DRUGS (1)
  1. UNISOM SLEEPTABS [Suspect]
     Active Substance: DOXYLAMINE SUCCINATE
     Indication: INSOMNIA
     Dosage: 12.5 MG, SINGLE
     Route: 048
     Dates: start: 20171227, end: 20171227

REACTIONS (7)
  - Dyspnoea [Recovered/Resolved]
  - Balance disorder [Recovered/Resolved]
  - Psychomotor hyperactivity [Recovered/Resolved]
  - Irritability [Recovered/Resolved]
  - Drug effect prolonged [Recovered/Resolved]
  - Clumsiness [Recovered/Resolved]
  - Underdose [Recovered/Resolved]

NARRATIVE: CASE EVENT DATE: 20171227
